FAERS Safety Report 18889202 (Version 1)
Quarter: 2021Q1

REPORT INFORMATION
  Report Type: Spontaneous
  Country: US (occurrence: US)
  Receive Date: 20210212
  Receipt Date: 20210212
  Transmission Date: 20210420
  Serious: Yes (Other)
  Sender: FDA-Public Use
  Company Number: US-SUNOVION-2021SUN000366

PATIENT
  Sex: Male

DRUGS (4)
  1. EFFEXOR [Concomitant]
     Active Substance: VENLAFAXINE HYDROCHLORIDE
     Dosage: 150 MG
     Dates: end: 20210203
  2. BUPROPION. [Concomitant]
     Active Substance: BUPROPION
     Dosage: 200 MG
  3. LATUDA [Suspect]
     Active Substance: LURASIDONE HYDROCHLORIDE
     Dosage: 60 MG, QD
     Route: 048
     Dates: end: 20210203
  4. DEPAKOTE [Concomitant]
     Active Substance: DIVALPROEX SODIUM
     Dosage: 1000 MG

REACTIONS (9)
  - Headache [Not Recovered/Not Resolved]
  - Nausea [Not Recovered/Not Resolved]
  - Somnolence [Unknown]
  - Nightmare [Not Recovered/Not Resolved]
  - Depressed mood [Not Recovered/Not Resolved]
  - Self-injurious ideation [Unknown]
  - Withdrawal syndrome [Not Recovered/Not Resolved]
  - Tachyphrenia [Unknown]
  - Feelings of worthlessness [Unknown]
